FAERS Safety Report 23172122 (Version 4)
Quarter: 2023Q4

REPORT INFORMATION
  Report Type: Spontaneous
  Country: US (occurrence: US)
  Receive Date: 20231110
  Receipt Date: 20231129
  Transmission Date: 20240110
  Serious: Yes (Other)
  Sender: FDA-Public Use
  Company Number: US-UCBSA-2023052831

PATIENT
  Age: 26 Day
  Sex: Female

DRUGS (6)
  1. LACOSAMIDE [Suspect]
     Active Substance: LACOSAMIDE
     Indication: Neonatal seizure
     Dosage: INITIATED WITH A LOADING DOSE (2 MG/KG/DOSE)
  2. LEVETIRACETAM [Suspect]
     Active Substance: LEVETIRACETAM
     Indication: Neonatal seizure
     Dosage: 60 MG/KG/DAY DIVIDED TWICE DAILY
     Route: 042
  3. LEVETIRACETAM [Suspect]
     Active Substance: LEVETIRACETAM
     Dosage: 100 MG/KG/DAY DIVIDED TWICE DAILY
     Route: 042
  4. PHENOBARBITAL [Suspect]
     Active Substance: PHENOBARBITAL
     Indication: Neonatal seizure
     Dosage: 2 MILLIGRAM/KILOGRAM, 2X/DAY (BID)
     Route: 042
  5. PHENOBARBITAL [Suspect]
     Active Substance: PHENOBARBITAL
     Dosage: 6 MILLIGRAM, 2X/DAY (BID),DIVIDED TWICE DAILY
     Route: 042
  6. FOSPHENYTOIN [Suspect]
     Active Substance: FOSPHENYTOIN
     Indication: Neonatal seizure
     Dosage: 6 MG/KG DIVIDED TWICE DAILY, (2X/DAY (BID))
     Route: 042

REACTIONS (7)
  - Cardiac arrest [Recovered/Resolved]
  - Seizure [Unknown]
  - Intraventricular haemorrhage neonatal [Unknown]
  - Electrolyte imbalance [Unknown]
  - Atrioventricular block second degree [Recovered/Resolved]
  - Off label use [Unknown]
  - Underdose [Unknown]
